FAERS Safety Report 13768461 (Version 1)
Quarter: 2017Q3

REPORT INFORMATION
  Report Type: Spontaneous
  Country: FR (occurrence: FR)
  Receive Date: 20170719
  Receipt Date: 20170719
  Transmission Date: 20171127
  Serious: Yes (Hospitalization)
  Sender: FDA-Public Use
  Company Number: FR-ACTELION-A-CH2017-156590

PATIENT
  Age: 54 Year
  Sex: Female

DRUGS (3)
  1. ADCIRCA [Concomitant]
     Active Substance: TADALAFIL
  2. UPTRAVI [Suspect]
     Active Substance: SELEXIPAG
     Indication: PRODUCT USED FOR UNKNOWN INDICATION
     Dosage: 1200 ?G, BID
     Route: 048
     Dates: end: 20170524
  3. TRACLEER [Concomitant]
     Active Substance: BOSENTAN
     Indication: PULMONARY ARTERIAL HYPERTENSION

REACTIONS (1)
  - Condition aggravated [Unknown]

NARRATIVE: CASE EVENT DATE: 2017
